FAERS Safety Report 18011427 (Version 1)
Quarter: 2020Q3

REPORT INFORMATION
  Report Type: Spontaneous
  Country: US (occurrence: US)
  Receive Date: 20200712
  Receipt Date: 20200712
  Transmission Date: 20201103
  Serious: No
  Sender: FDA-Public Use
  Company Number: US-JNJFOC-20200705845

PATIENT
  Age: 56 Year
  Sex: Female
  Weight: 59.02 kg

DRUGS (1)
  1. WOMENS ROGAINE UNSCENTED [Suspect]
     Active Substance: MINOXIDIL
     Indication: ALOPECIA
     Dosage: DOSE AND FREQUENCY: HALF A CAP FUL ONCE A DAY.?THE PRODUCT IS LAST ADMINISTERED ON 02/JUL/2020.
     Route: 061
     Dates: start: 20200630

REACTIONS (1)
  - Hypoaesthesia oral [Recovering/Resolving]

NARRATIVE: CASE EVENT DATE: 20200630
